FAERS Safety Report 19113233 (Version 21)
Quarter: 2025Q3

REPORT INFORMATION
  Report Type: Report from Study
  Country: US (occurrence: US)
  Receive Date: 20210408
  Receipt Date: 20250722
  Transmission Date: 20251020
  Serious: Yes (Hospitalization, Other)
  Sender: TAKEDA
  Company Number: US-TAKEDA-2021TUS020899

PATIENT
  Age: 44 Year
  Sex: Female
  Weight: 98 kg

DRUGS (13)
  1. HUMAN IMMUNOGLOBULIN G [Suspect]
     Active Substance: HUMAN IMMUNOGLOBULIN G
     Indication: Congenital hypogammaglobulinaemia
     Dosage: 20 GRAM, Q2WEEKS
     Dates: start: 20210317
  2. HUMAN IMMUNOGLOBULIN G [Suspect]
     Active Substance: HUMAN IMMUNOGLOBULIN G
     Dosage: 20 GRAM, Q2WEEKS
  3. HUMAN IMMUNOGLOBULIN G [Suspect]
     Active Substance: HUMAN IMMUNOGLOBULIN G
     Dosage: 25 GRAM, Q2WEEKS
  4. HUMAN IMMUNOGLOBULIN G [Suspect]
     Active Substance: HUMAN IMMUNOGLOBULIN G
  5. HUMAN IMMUNOGLOBULIN G [Suspect]
     Active Substance: HUMAN IMMUNOGLOBULIN G
     Dosage: 20 GRAM, Q2WEEKS
     Dates: start: 20210409
  6. HUMAN IMMUNOGLOBULIN G [Suspect]
     Active Substance: HUMAN IMMUNOGLOBULIN G
     Dosage: 25 MILLIGRAM, Q2WEEKS
  7. HUMAN IMMUNOGLOBULIN G [Suspect]
     Active Substance: HUMAN IMMUNOGLOBULIN G
     Dosage: 25 GRAM, Q2WEEKS
  8. COVID-19 VACCINE NOS [Suspect]
     Active Substance: COVID-19 VACCINE
     Indication: COVID-19 immunisation
  9. DIPHENHYDRAMINE [Concomitant]
     Active Substance: DIPHENHYDRAMINE
  10. EPINEPHRINE [Concomitant]
     Active Substance: EPINEPHRINE
  11. ACETAMINOPHEN [Concomitant]
     Active Substance: ACETAMINOPHEN
  12. Lmx [Concomitant]
  13. DIPHENHYDRAMINE HYDROCHLORIDE [Concomitant]
     Active Substance: DIPHENHYDRAMINE HYDROCHLORIDE

REACTIONS (29)
  - Hypotension [Not Recovered/Not Resolved]
  - Mastoiditis [Unknown]
  - Thrombosis [Unknown]
  - Bradycardia [Unknown]
  - Syncope [Unknown]
  - Alopecia [Not Recovered/Not Resolved]
  - Hypertension [Recovered/Resolved]
  - Small fibre neuropathy [Unknown]
  - Infusion related reaction [Unknown]
  - Cardiac disorder [Unknown]
  - Vaccination site injury [Unknown]
  - Fall [Unknown]
  - Brain fog [Unknown]
  - Ear infection [Unknown]
  - Helminthic infection [Unknown]
  - Seasonal allergy [Unknown]
  - Bronchitis [Unknown]
  - COVID-19 [Unknown]
  - Sinusitis [Unknown]
  - Balance disorder [Unknown]
  - Rash [Unknown]
  - Infusion site bruising [Unknown]
  - Injection site pain [Unknown]
  - Burning sensation [Unknown]
  - Dizziness [Unknown]
  - Fatigue [Unknown]
  - Headache [Recovering/Resolving]
  - Nausea [Recovering/Resolving]
  - Pruritus [Unknown]

NARRATIVE: CASE EVENT DATE: 20210409
